FAERS Safety Report 6772139-7 (Version None)
Quarter: 2010Q2

REPORT INFORMATION
  Report Type: 
  Country: None (occurrence: None)
  Receive Date: 20100616
  Receipt Date: 20100608
  Transmission Date: 20101027
  Serious: Yes (Life-Threatening, Hospitalization)
  Sender: FDA-Public Use
  Company Number: B0660837A

PATIENT
  Sex: Female

DRUGS (1)
  1. CEFUROXIME [Suspect]
     Dosage: 250MG TWICE PER DAY
     Route: 048
     Dates: start: 20100605, end: 20100605

REACTIONS (2)
  - ANAPHYLACTIC SHOCK [None]
  - BLOOD PRESSURE DECREASED [None]
